FAERS Safety Report 20184377 (Version 1)
Quarter: 2021Q4

REPORT INFORMATION
  Report Type: Spontaneous
  Country: IL (occurrence: IL)
  Receive Date: 20211214
  Receipt Date: 20211214
  Transmission Date: 20220303
  Serious: Yes (Other)
  Sender: FDA-Public Use
  Company Number: IL-NOVOPROD-761629

PATIENT
  Sex: Female

DRUGS (1)
  1. NOVORAPID [Suspect]
     Active Substance: INSULIN ASPART
     Indication: Type 2 diabetes mellitus
     Dosage: VARYING ACCORDING TO NEED (GLUCOSE LOW INJECTS 4 UNITS AND WHEN HIGH INJECTS 6-7 UNITS)
     Route: 065

REACTIONS (2)
  - Neoplasm malignant [Unknown]
  - Blood glucose fluctuation [Not Recovered/Not Resolved]
